FAERS Safety Report 11159258 (Version 1)
Quarter: 2015Q2

REPORT INFORMATION
  Report Type: Spontaneous
  Country: FR (occurrence: FR)
  Receive Date: 20150603
  Receipt Date: 20150603
  Transmission Date: 20150821
  Serious: Yes (Hospitalization)
  Sender: FDA-Public Use
  Company Number: FR-GLAXOSMITHKLINE-FR2015GSK073636

PATIENT
  Age: 75 Year
  Sex: Female

DRUGS (6)
  1. LEVOFOLINATE [Suspect]
     Active Substance: LEVOLEUCOVORIN CALCIUM
     Indication: PREMEDICATION
     Dosage: 200 MG/M2, SINGLE
     Route: 042
     Dates: start: 20150428, end: 20150428
  2. SOLU-MEDROL [Concomitant]
     Active Substance: METHYLPREDNISOLONE SODIUM SUCCINATE
     Indication: PREMEDICATION
     Dosage: 60 MG, Z
     Route: 042
     Dates: start: 20150428, end: 20150428
  3. ZOPHREN [Suspect]
     Active Substance: ONDANSETRON
     Indication: PREMEDICATION
     Dosage: 8 MG, SINGLE
     Route: 042
     Dates: start: 20150428, end: 20150428
  4. ATROPINE [Suspect]
     Active Substance: ATROPINE
     Indication: PREMEDICATION
     Dosage: 0.25 MG, SINGLE
     Route: 042
     Dates: start: 20150428, end: 20150428
  5. PRIMPERAN [Suspect]
     Active Substance: METOCLOPRAMIDE HYDROCHLORIDE
     Indication: PREMEDICATION
     Dosage: 20 MG, SINGLE
     Route: 042
     Dates: start: 20150428, end: 20150428
  6. IRINOTECAN [Suspect]
     Active Substance: IRINOTECAN
     Indication: NEOPLASM MALIGNANT
     Dosage: 210 MG, SINGLE
     Route: 042
     Dates: start: 20150428, end: 20150428

REACTIONS (3)
  - Malaise [Recovered/Resolved]
  - Oral pain [Recovered/Resolved]
  - Speech disorder [Recovered/Resolved]

NARRATIVE: CASE EVENT DATE: 20150428
